FAERS Safety Report 16032206 (Version 1)
Quarter: 2019Q1

REPORT INFORMATION
  Report Type: Report from Study
  Country: BR (occurrence: BR)
  Receive Date: 20190304
  Receipt Date: 20190304
  Transmission Date: 20190418
  Serious: Yes (Hospitalization)
  Sender: FDA-Public Use
  Company Number: BR-BIOGEN-2017BI00439786

PATIENT
  Sex: Female

DRUGS (4)
  1. CERTRALINA [Concomitant]
     Indication: PRODUCT USED FOR UNKNOWN INDICATION
     Route: 050
     Dates: start: 201709
  2. AVONEX [Suspect]
     Active Substance: INTERFERON BETA-1A
     Indication: MULTIPLE SCLEROSIS
     Route: 050
     Dates: start: 20060709
  3. TILEX [Concomitant]
     Indication: PRODUCT USED FOR UNKNOWN INDICATION
     Route: 050
  4. ULTRACET [Concomitant]
     Active Substance: ACETAMINOPHEN\TRAMADOL HYDROCHLORIDE
     Indication: PRODUCT USED FOR UNKNOWN INDICATION
     Route: 050
     Dates: start: 2008

REACTIONS (11)
  - Osteoarthritis [Not Recovered/Not Resolved]
  - Retinal haemorrhage [Unknown]
  - Skin exfoliation [Unknown]
  - Abdominal pain [Unknown]
  - Haemorrhoids [Unknown]
  - Flushing [Unknown]
  - Neck pain [Unknown]
  - Constipation [Unknown]
  - Nervous system disorder [Unknown]
  - Multiple sclerosis relapse [Recovered/Resolved]
  - Muscle atrophy [Recovered/Resolved]

NARRATIVE: CASE EVENT DATE: 2013
